FAERS Safety Report 11362795 (Version 1)
Quarter: 2015Q3

REPORT INFORMATION
  Report Type: Spontaneous
  Country: US (occurrence: None)
  Receive Date: 20150807
  Receipt Date: 20150807
  Transmission Date: 20151125
  Serious: Yes (Death, Other)
  Sender: FDA-Public Use
  Company Number: CR15-0002

PATIENT
  Age: 35 Year
  Sex: Male
  Weight: 43.1 kg

DRUGS (3)
  1. PRIMATENE MIST [Suspect]
     Active Substance: EPINEPHRINE
     Indication: ASTHMA
     Dosage: UNK DOSE, UNK FREQ, INH.
     Route: 055
  2. CHEMOTHERAPY [Concomitant]
     Active Substance: UNSPECIFIED INGREDIENT
  3. ANTI-NAUSEA MEDICATION [Concomitant]
     Active Substance: UNSPECIFIED INGREDIENT

REACTIONS (3)
  - Chest discomfort [None]
  - Chest pain [None]
  - Feeling abnormal [None]

NARRATIVE: CASE EVENT DATE: 20100510
